FAERS Safety Report 10187235 (Version 2)
Quarter: 2014Q2

REPORT INFORMATION
  Report Type: Spontaneous
  Country: JP (occurrence: JP)
  Receive Date: 20140522
  Receipt Date: 20140615
  Transmission Date: 20141212
  Serious: No
  Sender: FDA-Public Use
  Company Number: PHHY2014JP061226

PATIENT
  Sex: 0

DRUGS (1)
  1. LAMISIL [Suspect]
     Indication: ONYCHOMYCOSIS
     Dosage: UNK UKN, UNK
     Dates: start: 20140314

REACTIONS (2)
  - Abnormal sensation in eye [Unknown]
  - Oculomucocutaneous syndrome [Unknown]
